FAERS Safety Report 17783560 (Version 7)
Quarter: 2021Q2

REPORT INFORMATION
  Report Type: Spontaneous
  Country: US (occurrence: US)
  Receive Date: 20200514
  Receipt Date: 20210505
  Transmission Date: 20210716
  Serious: Yes (Other)
  Sender: FDA-Public Use
  Company Number: US-PFIZER INC-2020192587

PATIENT
  Age: 56 Year
  Sex: Male

DRUGS (4)
  1. AMLODIPINE [Concomitant]
     Active Substance: AMLODIPINE BESYLATE
     Dosage: 5 MG
  2. AMLODIPINE [Concomitant]
     Active Substance: AMLODIPINE BESYLATE
     Dosage: 2.5 MG
  3. NAPROXEN. [Concomitant]
     Active Substance: NAPROXEN
  4. XELJANZ XR [Suspect]
     Active Substance: TOFACITINIB CITRATE
     Indication: RHEUMATOID ARTHRITIS
     Dosage: 11 MG, 1X/DAY (1 TAB ONCE DAILY)
     Route: 048
     Dates: start: 20200316

REACTIONS (9)
  - Frustration tolerance decreased [Unknown]
  - Abdominal pain upper [Unknown]
  - Attention deficit hyperactivity disorder [Unknown]
  - Blood creatinine increased [Unknown]
  - Renal disorder [Unknown]
  - Blood creatinine decreased [Unknown]
  - Disturbance in attention [Unknown]
  - COVID-19 [Unknown]
  - Hypotension [Unknown]

NARRATIVE: CASE EVENT DATE: 2020
